FAERS Safety Report 14220915 (Version 1)
Quarter: 2017Q4

REPORT INFORMATION
  Report Type: Report from Study
  Country: AU (occurrence: AU)
  Receive Date: 20171124
  Receipt Date: 20171124
  Transmission Date: 20180321
  Serious: Yes (Other)
  Sender: FDA-Public Use
  Company Number: PHHY2017AU173805

PATIENT

DRUGS (2)
  1. HUMIRA [Concomitant]
     Active Substance: ADALIMUMAB
     Indication: MUSCLE SPASMS
     Route: 065
  2. COSENTYX [Suspect]
     Active Substance: SECUKINUMAB
     Indication: ANKYLOSING SPONDYLITIS
     Route: 065

REACTIONS (17)
  - Musculoskeletal stiffness [Unknown]
  - Mobility decreased [Unknown]
  - Neck pain [Unknown]
  - Musculoskeletal pain [Unknown]
  - Asthenia [Unknown]
  - Rhinorrhoea [Unknown]
  - Back pain [Unknown]
  - Iritis [Unknown]
  - Abdominal discomfort [Unknown]
  - Pain [Unknown]
  - Fatigue [Unknown]
  - Pain in extremity [Unknown]
  - Heart valve incompetence [Unknown]
  - Skin infection [Unknown]
  - Cataract [Unknown]
  - Arthralgia [Unknown]
  - Restlessness [Unknown]
